FAERS Safety Report 10963463 (Version 1)
Quarter: 2015Q1

REPORT INFORMATION
  Report Type: Spontaneous
  Country: US (occurrence: None)
  Receive Date: 20150226
  Receipt Date: 20150226
  Transmission Date: 20150721
  Serious: No
  Sender: FDA-Public Use
  Company Number: TPA2010A00257

PATIENT
  Age: 50 Year
  Sex: Male
  Weight: 110.68 kg

DRUGS (5)
  1. ULORIC [Suspect]
     Active Substance: FEBUXOSTAT
     Indication: GOUT
     Route: 048
     Dates: start: 20100110, end: 201001
  2. LISINOPRIL. [Concomitant]
     Active Substance: LISINOPRIL
  3. ZETIA [Concomitant]
     Active Substance: EZETIMIBE
  4. HCTZ (HYDROCHLOROTHIAZIDE) [Concomitant]
     Active Substance: HYDROCHLOROTHIAZIDE
  5. INDOMETHACIN. [Concomitant]
     Active Substance: INDOMETHACIN

REACTIONS (4)
  - Gout [None]
  - Abdominal pain [None]
  - Flatulence [None]
  - Condition aggravated [None]

NARRATIVE: CASE EVENT DATE: 2009
